FAERS Safety Report 6705691-8 (Version None)
Quarter: 2010Q2

REPORT INFORMATION
  Report Type: 
  Country: None (occurrence: None)
  Receive Date: 20100503
  Receipt Date: 20100423
  Transmission Date: 20101027
  Serious: Yes (Other)
  Sender: FDA-Public Use
  Company Number: JP-JNJFOC-20100407394

PATIENT
  Age: 78 Year
  Sex: Female

DRUGS (7)
  1. CRAVIT [Suspect]
     Indication: CYSTITIS
     Route: 048
  2. AMARYL [Suspect]
     Indication: DRUG USE FOR UNKNOWN INDICATION
     Route: 065
  3. MELBIN [Suspect]
     Indication: DRUG USE FOR UNKNOWN INDICATION
     Route: 065
  4. ADALAT CC [Concomitant]
     Route: 065
  5. DIOVAN [Concomitant]
     Route: 065
  6. ALPRAZOLAM [Concomitant]
     Route: 065
  7. LUVOX [Concomitant]
     Route: 065

REACTIONS (2)
  - COMA [None]
  - HYPOGLYCAEMIA [None]
